FAERS Safety Report 4451354-1 (Version None)
Quarter: 2004Q3

REPORT INFORMATION
  Report Type: 
  Country: None (occurrence: None)
  Receive Date: 20040916
  Receipt Date: 20031014
  Transmission Date: 20050211
  Serious: Yes (Other)
  Sender: FDA-Public Use
  Company Number: US-MERCK-0310USA01673

PATIENT
  Age: 52 Year
  Sex: Female
  Weight: 84 kg

DRUGS (8)
  1. ACETAMINOPHEN [Concomitant]
     Route: 048
  2. ATENOLOL [Concomitant]
     Route: 048
  3. BACLOFEN [Concomitant]
     Route: 048
  4. INTERFERON BETA [Concomitant]
     Route: 030
  5. LEVOTHYROXINE SODIUM [Concomitant]
     Route: 048
  6. OMEPRAZOLE [Concomitant]
     Route: 048
  7. VIOXX [Suspect]
     Indication: PAIN IN EXTREMITY
     Route: 048
     Dates: start: 20020501, end: 20030201
  8. VITAMINS (UNSPECIFIED) [Concomitant]
     Route: 048

REACTIONS (2)
  - HALO VISION [None]
  - SCOTOMA [None]
